FAERS Safety Report 16430211 (Version 1)
Quarter: 2019Q2

REPORT INFORMATION
  Report Type: Spontaneous
  Country: HR (occurrence: HR)
  Receive Date: 20190614
  Receipt Date: 20190614
  Transmission Date: 20190711
  Serious: Yes (Death, Hospitalization, Other)
  Sender: FDA-Public Use
  Company Number: HR-AMGEN-HRVSP2019092874

PATIENT

DRUGS (2)
  1. NEULASTA [Suspect]
     Active Substance: PEGFILGRASTIM
     Indication: PRODUCT USED FOR UNKNOWN INDICATION
     Dosage: UNK
     Route: 065
  2. NEULASTA [Suspect]
     Active Substance: PEGFILGRASTIM
     Dosage: UNK
     Route: 065

REACTIONS (16)
  - Diverticulitis [Unknown]
  - Septic shock [Unknown]
  - Disease progression [Unknown]
  - General physical health deterioration [Unknown]
  - Inappropriate schedule of product administration [Unknown]
  - Pneumocystis jirovecii pneumonia [Unknown]
  - Toxicity to various agents [Unknown]
  - Febrile neutropenia [Fatal]
  - Neuropathy peripheral [Unknown]
  - Toxoplasmosis [Unknown]
  - Neutropenia [Unknown]
  - Neoplasm [Unknown]
  - Pruritus [Unknown]
  - Infection [Unknown]
  - Neutropenic sepsis [Fatal]
  - Thrombocytopenia [Unknown]
